FAERS Safety Report 23160238 (Version 1)
Quarter: 2023Q4

REPORT INFORMATION
  Report Type: Spontaneous
  Country: CN (occurrence: None)
  Receive Date: 20231108
  Receipt Date: 20231108
  Transmission Date: 20240109
  Serious: Yes (Hospitalization, Other)
  Sender: FDA-Public Use
  Company Number: 2023A250120

PATIENT
  Age: 27007 Day
  Sex: Male
  Weight: 45 kg

DRUGS (3)
  1. DAPAGLIFLOZIN [Suspect]
     Active Substance: DAPAGLIFLOZIN
     Indication: Blood glucose
     Route: 048
     Dates: start: 20231017, end: 20231019
  2. ACARBOSE [Concomitant]
     Active Substance: ACARBOSE
     Route: 048
  3. HUMULINE [Concomitant]
     Dosage: 70/30, 11U IN THE MORNING AND 11U IN THE EVENING
     Route: 058

REACTIONS (2)
  - Metabolic acidosis [Recovering/Resolving]
  - Appetite disorder [Unknown]

NARRATIVE: CASE EVENT DATE: 20231019
